FAERS Safety Report 12469309 (Version 3)
Quarter: 2016Q4

REPORT INFORMATION
  Report Type: Spontaneous
  Country: US (occurrence: US)
  Receive Date: 20160615
  Receipt Date: 20161117
  Transmission Date: 20170207
  Serious: Yes (Disabling, Other)
  Sender: FDA-Public Use
  Company Number: US-REGENERON PHARMACEUTICALS, INC.-2016-18177

PATIENT

DRUGS (1)
  1. EYLEA [Suspect]
     Active Substance: AFLIBERCEPT
     Indication: RETINAL VEIN OCCLUSION
     Dosage: LEFT EYE, RECEIVED 7 INJECTIONS
     Route: 031
     Dates: start: 20160607, end: 20160607

REACTIONS (5)
  - Blindness [Not Recovered/Not Resolved]
  - Intraocular pressure increased [Recovering/Resolving]
  - Product contamination [Unknown]
  - Lens disorder [Recovered/Resolved]
  - Cataract [Unknown]

NARRATIVE: CASE EVENT DATE: 20160607
